FAERS Safety Report 9238073 (Version 1)
Quarter: 2013Q1

REPORT INFORMATION
  Report Type: Spontaneous
  Country: US (occurrence: None)
  Receive Date: 20121107
  Receipt Date: 20121107
  Transmission Date: 20140127
  Serious: No
  Sender: FDA-Public Use
  Company Number: 2012HGS-003756

PATIENT
  Sex: Female

DRUGS (1)
  1. BENLYSTA [Suspect]
     Route: 041
     Dates: start: 201112

REACTIONS (6)
  - Vomiting [None]
  - Abdominal pain upper [None]
  - Cough [None]
  - Initial insomnia [None]
  - Pain in extremity [None]
  - Headache [None]
